FAERS Safety Report 8598843-6 (Version None)
Quarter: 2012Q3

REPORT INFORMATION
  Report Type: 
  Country: None (occurrence: None)
  Receive Date: 20120816
  Receipt Date: 20120806
  Transmission Date: 20120928
  Serious: Yes (Other)
  Sender: FDA-Public Use
  Company Number: JP-GLAXOSMITHKLINE-B0821891A

PATIENT
  Sex: Female

DRUGS (12)
  1. MARZULENE-S [Concomitant]
     Route: 048
  2. ACETAMINOPHEN [Concomitant]
     Indication: PYREXIA
     Route: 048
     Dates: start: 20120701, end: 20120722
  3. SEROQUEL [Concomitant]
     Route: 048
  4. FLURAZEPAM [Concomitant]
     Route: 048
  5. LAMICTAL [Suspect]
     Dosage: 50MG PER DAY
     Dates: start: 20120718, end: 20120722
  6. CLONAZEPAM [Concomitant]
     Dosage: 8MG PER DAY
     Route: 048
  7. AMOXICILLIN [Concomitant]
     Indication: PYREXIA
     Route: 048
     Dates: start: 20120701, end: 20120722
  8. LENDORMIN [Concomitant]
     Route: 048
  9. HALCION [Concomitant]
     Route: 048
  10. LAMICTAL [Suspect]
     Indication: BIPOLAR DISORDER
     Dosage: 25MG PER DAY
     Dates: start: 20120704, end: 20120717
  11. LITHIUM CARBONATE [Concomitant]
     Indication: BIPOLAR DISORDER
     Dosage: 1200MG PER DAY
     Route: 048
  12. LEXOTAN [Concomitant]
     Dosage: 2MG PER DAY
     Route: 048

REACTIONS (5)
  - OROPHARYNGEAL PAIN [None]
  - CONDITION AGGRAVATED [None]
  - RASH ERYTHEMATOUS [None]
  - PYREXIA [None]
  - TONSILLAR HYPERTROPHY [None]
